FAERS Safety Report 8904192 (Version 1)
Quarter: 2012Q4

REPORT INFORMATION
  Report Type: 
  Country: DE (occurrence: DE)
  Receive Date: 20121112
  Receipt Date: 20121112
  Transmission Date: 20130627
  Serious: Yes (Life-Threatening, Hospitalization)
  Sender: FDA-Public Use
  Company Number: DE-ASTRAZENECA-2012SE82737

PATIENT
  Age: 3 Month
  Sex: Male

DRUGS (3)
  1. SYNAGIS [Suspect]
     Route: 030
     Dates: start: 20121005
  2. VIGANTOLETEN [Concomitant]
  3. FERROSANOL [Concomitant]

REACTIONS (5)
  - Oxygen saturation abnormal [Recovered/Resolved]
  - Respiratory tract infection [Recovered/Resolved]
  - Vomiting [Recovered/Resolved]
  - Aspiration [Recovered/Resolved]
  - Pyrexia [Unknown]
